FAERS Safety Report 6916652-8 (Version None)
Quarter: 2010Q3

REPORT INFORMATION
  Report Type: 
  Country: None (occurrence: None)
  Receive Date: 20100810
  Receipt Date: 20100729
  Transmission Date: 20110219
  Serious: Yes (Other)
  Sender: FDA-Public Use
  Company Number: IE-ROCHE-714094

PATIENT
  Sex: Female
  Weight: 76 kg

DRUGS (6)
  1. ROACTEMRA [Suspect]
     Indication: SERONEGATIVE ARTHRITIS
     Dosage: ROUTE:I.V INFUSION RATE:100ML/HOUR
     Route: 042
     Dates: end: 20100707
  2. ROACTEMRA [Suspect]
     Dosage: ROUTE:IV INFUSION RATE:75ML/HOUR,  20MG/ML. DOSE : 8 MG/KG
     Route: 042
     Dates: start: 20100707, end: 20100707
  3. ARCOXIA [Concomitant]
     Route: 048
  4. METHOTREXATE [Concomitant]
     Route: 048
  5. CETIRIZINE HCL [Concomitant]
     Route: 048
  6. PROTIUM [Concomitant]
     Route: 048

REACTIONS (6)
  - ASTHENIA [None]
  - CATHETER SITE PAIN [None]
  - DIZZINESS [None]
  - FLUSHING [None]
  - HYPERTENSION [None]
  - TACHYCARDIA [None]
